FAERS Safety Report 6536483-0 (Version None)
Quarter: 2010Q1

REPORT INFORMATION
  Report Type: 
  Country: None (occurrence: None)
  Receive Date: 20100113
  Receipt Date: 20100105
  Transmission Date: 20100710
  Serious: Yes (Hospitalization)
  Sender: FDA-Public Use
  Company Number: DE-MERCK-1001DEU00010

PATIENT
  Age: 68 Year
  Sex: Female

DRUGS (10)
  1. ZETIA [Suspect]
     Route: 048
  2. ASPIRIN [Concomitant]
     Route: 048
  3. MESALAMINE [Concomitant]
     Route: 048
  4. ESOMEPRAZOLE MAGNESIUM [Concomitant]
     Route: 048
  5. NALOXONE HYDROCHLORIDE AND TILIDINE HYDROCHLORIDE [Concomitant]
     Route: 065
  6. OMEGA-3 ACID ETHYL ESTERS [Concomitant]
     Route: 048
  7. CALCIUM CARBONATE AND CHOLECALCIFEROL [Concomitant]
     Route: 048
  8. FOLIC ACID [Concomitant]
     Route: 048
  9. ISOSORBIDE MONONITRATE [Concomitant]
     Route: 048
  10. VERAPAMIL HYDROCHLORIDE [Concomitant]
     Route: 048

REACTIONS (1)
  - PERIPHERAL ARTERIAL OCCLUSIVE DISEASE [None]
